FAERS Safety Report 6847747-5 (Version None)
Quarter: 2010Q3

REPORT INFORMATION
  Report Type: 
  Country: None (occurrence: None)
  Receive Date: 20100716
  Receipt Date: 20100708
  Transmission Date: 20110219
  Serious: Yes (Other)
  Sender: FDA-Public Use
  Company Number: GB-GENZYME-CLOF-1000889

PATIENT
  Sex: Male

DRUGS (13)
  1. EVOLTRA [Interacting]
     Indication: ACUTE MYELOID LEUKAEMIA
     Dosage: 37.8 MG, QDX5
     Route: 042
     Dates: start: 20091218, end: 20091222
  2. EVOLTRA [Interacting]
     Dosage: 39 MG, QDX5
     Route: 042
     Dates: start: 20100216, end: 20100220
  3. DAUNORUBICIN HCL [Interacting]
     Indication: ACUTE MYELOID LEUKAEMIA
     Dosage: 94.5 MG, UNK
     Route: 065
     Dates: start: 20091112, end: 20091116
  4. DAUNORUBICIN HCL [Interacting]
     Dosage: 94.5 MG, UNK
     Route: 042
     Dates: start: 20091218, end: 20091222
  5. DAUNORUBICIN HCL [Interacting]
     Dosage: 97.5 MG, UNK
     Route: 042
     Dates: start: 20100216, end: 20100220
  6. ARA-C [Suspect]
     Indication: ACUTE MYELOID LEUKAEMIA
     Dosage: 189 MG, BID
     Route: 042
     Dates: start: 20091112, end: 20091121
  7. MYLOTARG [Interacting]
     Indication: ACUTE MYELOID LEUKAEMIA
     Dosage: 6 MG/M2, ONCE
     Route: 042
     Dates: start: 20091112, end: 20091112
  8. CHLORHEXIDINE [Concomitant]
     Indication: PRODUCT USED FOR UNKNOWN INDICATION
     Dosage: 10 ML, UNK
     Dates: start: 20091218
  9. NYSTATIN [Concomitant]
     Indication: PRODUCT USED FOR UNKNOWN INDICATION
     Dosage: 1 ML, UNK
     Dates: start: 20091218
  10. ACYCLOVIR [Concomitant]
     Indication: PRODUCT USED FOR UNKNOWN INDICATION
     Dosage: 400 MG, UNK
     Dates: start: 20091218
  11. ACETAMINOPHEN [Concomitant]
     Indication: PRODUCT USED FOR UNKNOWN INDICATION
     Dosage: 1 G, UNK
     Dates: start: 20091201, end: 20100101
  12. CODEINE PHOSPHATE [Concomitant]
     Indication: PRODUCT USED FOR UNKNOWN INDICATION
     Dosage: 30 MG, UNK
     Dates: start: 20091201, end: 20100101
  13. ITRACONAZOLE [Concomitant]
     Indication: PRODUCT USED FOR UNKNOWN INDICATION
     Dosage: 200 MG, UNK
     Dates: start: 20091111

REACTIONS (2)
  - ANAL ABSCESS [None]
  - THROMBOCYTOPENIA [None]
